FAERS Safety Report 19188497 (Version 1)
Quarter: 2021Q2

REPORT INFORMATION
  Report Type: Report from Study
  Country: US (occurrence: US)
  Receive Date: 20210428
  Receipt Date: 20210428
  Transmission Date: 20210717
  Serious: Yes (Hospitalization)
  Sender: FDA-Public Use
  Company Number: US-SUN PHARMACEUTICAL INDUSTRIES LTD-2021R1-292942

PATIENT
  Age: 28 Year
  Sex: Female
  Weight: 94 kg

DRUGS (2)
  1. HYDROMORPHONE [Suspect]
     Active Substance: HYDROMORPHONE
     Indication: PAIN
     Dosage: EQUIVALENT UP TO 192 MME/DAY
     Route: 065
  2. OXYCODONE [Suspect]
     Active Substance: OXYCODONE
     Indication: PAIN
     Dosage: EQUIVALENT TO 90 MME/DAY
     Route: 065

REACTIONS (2)
  - Therapeutic product effect incomplete [Unknown]
  - Oxygen saturation decreased [Unknown]
